FAERS Safety Report 19779405 (Version 4)
Quarter: 2021Q3

REPORT INFORMATION
  Report Type: Spontaneous
  Country: US (occurrence: US)
  Receive Date: 20210902
  Receipt Date: 20210930
  Transmission Date: 20211014
  Serious: Yes (Other)
  Sender: FDA-Public Use
  Company Number: US-PFIZER INC-202100941857

PATIENT
  Age: 80 Year
  Sex: Female

DRUGS (3)
  1. EUCRISA [Suspect]
     Active Substance: CRISABOROLE
     Indication: RASH
  2. EUCRISA [Suspect]
     Active Substance: CRISABOROLE
     Indication: NEURODERMATITIS
  3. EUCRISA [Suspect]
     Active Substance: CRISABOROLE
     Indication: PSORIASIS
     Dosage: APPLY TWICE A DAY (BID) TO RASH ON TRUNK AND EXTREMITIES

REACTIONS (4)
  - Foot fracture [Unknown]
  - Off label use [Unknown]
  - Pruritus [Unknown]
  - Condition aggravated [Unknown]
